FAERS Safety Report 9519789 (Version 1)
Quarter: 2013Q1

REPORT INFORMATION
  Report Type: Spontaneous
  Country: US (occurrence: None)
  Receive Date: 20130305
  Receipt Date: 20130305
  Transmission Date: 20140127
  Serious: Yes (Other)
  Sender: FDA-Public Use
  Company Number: 163-21880-12021228

PATIENT
  Age: 57 Year
  Sex: Male
  Weight: 106.6 kg

DRUGS (17)
  1. REVLIMID (LENALIDOMIDE) (25 MILLIGRAM, CAPSULES) [Suspect]
     Indication: PLASMA CELL MYELOMA
     Dosage: 25 MG, 1 IN 1 D, PO
     Route: 048
     Dates: start: 20100701, end: 201012
  2. DEXAMETHASONE (DEXAMETHASONE) (TABLETS) [Concomitant]
  3. BABY ASPIRIN (ACETYLSALICYLIC ACID) (UNKNOWN) [Concomitant]
  4. CALCIUM CARBONATE (CALCIUM CARBONATE) (TABLETS) [Concomitant]
  5. SILDENAFIL CITRATE (SILDENAFIL CITRATE) (TABLETS) [Concomitant]
  6. MELPHALAN (MELPHALAN) (TABLETS) [Concomitant]
  7. HYDROCODONE/ACETAMINOPHEN (REMEDEINE) (TABLETS) [Concomitant]
  8. PREDNISONE (PREDNISONE) (TABLETS) [Concomitant]
  9. GLIPIZIDE (GLIPIZIDE) (TABLETS) [Concomitant]
  10. HCTZ/LISINOPRIL (TABLETS) [Concomitant]
  11. CHOLECALCIFEROL (COLECALCIFEROL) (TABLETS) [Concomitant]
  12. METRONIDAZOLE (METRONIDAZOLE) (TABLETS) (METRONIDAZOLE) [Concomitant]
  13. VANCOMYCIN HCL (VANCOMYCIN HYDROCHLORIDE) (CAPSULES)? [Concomitant]
  14. RANITIDINE HCL (RANITIDINE HYDROCHLORIDE) (TABLETS) [Concomitant]
  15. PROCHLORPERAZINE MALEATE (PROCHLORPERAZINE MALEATE) (TABLETS)? [Concomitant]
  16. WARFARIN (WARFARIN) (TABLETS) [Concomitant]
  17. TRAMADOL HCL (TRAMADOL HYDROCHLORIDE) (TABLETS) [Concomitant]

REACTIONS (3)
  - Pancytopenia [None]
  - Clostridium difficile colitis [None]
  - Treatment noncompliance [None]
